FAERS Safety Report 20861789 (Version 3)
Quarter: 2022Q2

REPORT INFORMATION
  Report Type: Spontaneous
  Country: BG (occurrence: BG)
  Receive Date: 20220523
  Receipt Date: 20220630
  Transmission Date: 20220720
  Serious: Yes (Life-Threatening, Other)
  Sender: FDA-Public Use
  Company Number: BG-SA-2022SA167067

PATIENT
  Age: 68 Year
  Sex: Male

DRUGS (4)
  1. NINTEDANIB [Suspect]
     Active Substance: NINTEDANIB
     Indication: Non-small cell lung cancer stage IV
     Dosage: FROM DAY 2 TO DAY 21
     Route: 048
     Dates: start: 20200619
  2. NINTEDANIB [Suspect]
     Active Substance: NINTEDANIB
     Indication: Brain neoplasm
  3. DOCETAXEL [Suspect]
     Active Substance: DOCETAXEL
     Indication: Brain neoplasm
     Dosage: ON DAY 1 EVERY 21 DAYS
     Dates: start: 20200619
  4. DOCETAXEL [Suspect]
     Active Substance: DOCETAXEL
     Indication: Non-small cell lung cancer stage IV

REACTIONS (2)
  - Neutropenia [Unknown]
  - Diarrhoea [Unknown]

NARRATIVE: CASE EVENT DATE: 20200901
